FAERS Safety Report 5689717-9 (Version None)
Quarter: 2008Q1

REPORT INFORMATION
  Report Type: 
  Country: None (occurrence: None)
  Receive Date: 20080328
  Receipt Date: 20080320
  Transmission Date: 20080703
  Serious: Yes (Hospitalization)
  Sender: FDA-Public Use
  Company Number: 231999J08USA

PATIENT
  Age: 70 Year
  Sex: Female

DRUGS (6)
  1. REBIF [Suspect]
     Indication: MULTIPLE SCLEROSIS
     Dosage: 44 MCG, 3 IN 1 WEEKS; 22 MCG, 3 IN 1 WEEKS, SUBCUTANEOUS
     Dates: start: 20031020, end: 20061025
  2. REBIF [Suspect]
     Indication: MULTIPLE SCLEROSIS
     Dosage: 44 MCG, 3 IN 1 WEEKS; 22 MCG, 3 IN 1 WEEKS, SUBCUTANEOUS
     Dates: start: 20061025
  3. SYNTHROID [Concomitant]
  4. LEXAPRO [Concomitant]
  5. PROTONIX [Concomitant]
  6. ALLEGRA [Concomitant]

REACTIONS (7)
  - DEPRESSION [None]
  - GASTROOESOPHAGEAL REFLUX DISEASE [None]
  - MULTIPLE ALLERGIES [None]
  - SKIN ULCER [None]
  - THROMBOSIS [None]
  - THYROID DISORDER [None]
  - WHEELCHAIR USER [None]
